FAERS Safety Report 16946793 (Version 2)
Quarter: 2019Q4

REPORT INFORMATION
  Report Type: Spontaneous
  Country: US (occurrence: US)
  Receive Date: 20191022
  Receipt Date: 20191128
  Transmission Date: 20200122
  Serious: No
  Sender: FDA-Public Use
  Company Number: US-GLAXOSMITHKLINE-US2019189653

PATIENT
  Age: 61 Year
  Sex: Female

DRUGS (1)
  1. NICORETTE WHITE ICE MINT [Suspect]
     Active Substance: NICOTINE
     Indication: SMOKING CESSATION THERAPY
     Dosage: 4 MG, QD(10 LOZENGE)
     Route: 048
     Dates: start: 20191012, end: 20191017

REACTIONS (2)
  - Dysgeusia [Unknown]
  - Product complaint [Unknown]

NARRATIVE: CASE EVENT DATE: 20191012
